FAERS Safety Report 22638667 (Version 5)
Quarter: 2025Q3

REPORT INFORMATION
  Report Type: Report from Study
  Country: EU (occurrence: EU)
  Receive Date: 20230626
  Receipt Date: 20250708
  Transmission Date: 20251020
  Serious: Yes (Death, Other)
  Sender: CELLTRION
  Company Number: EU-CELLTRION INC.-2023IT012644

PATIENT

DRUGS (17)
  1. BEVACIZUMAB [Suspect]
     Active Substance: BEVACIZUMAB
     Indication: Hepatocellular carcinoma
     Route: 065
     Dates: start: 20230127
  2. ATEZOLIZUMAB [Suspect]
     Active Substance: ATEZOLIZUMAB
     Indication: Hepatocellular carcinoma
     Route: 041
     Dates: start: 20230127
  3. CHOLESTYRAMINE [Concomitant]
     Active Substance: CHOLESTYRAMINE
     Dates: start: 20230330
  4. PANTOPRAZOLE [Concomitant]
     Active Substance: PANTOPRAZOLE
     Dates: start: 20221220
  5. TAPENTADOL [Concomitant]
     Active Substance: TAPENTADOL
     Dates: start: 20230124
  6. LACTULOSE [Concomitant]
     Active Substance: LACTULOSE
  7. PREDNISONE [Concomitant]
     Active Substance: PREDNISONE
     Dates: start: 20230310
  8. HEPARIN [Concomitant]
     Active Substance: HEPARIN SODIUM
  9. NIFEDIPINE [Concomitant]
     Active Substance: NIFEDIPINE
  10. FUROSEMIDE [Concomitant]
     Active Substance: FUROSEMIDE
     Dates: start: 20221220, end: 20230330
  11. FUROSEMIDE [Concomitant]
     Active Substance: FUROSEMIDE
     Dates: start: 20230330
  12. FINASTERIDE [Concomitant]
     Active Substance: FINASTERIDE
  13. SORAFENIB [Concomitant]
     Active Substance: SORAFENIB
     Dates: start: 20230522, end: 20230529
  14. SORAFENIB [Concomitant]
     Active Substance: SORAFENIB
     Dates: start: 20230504
  15. CETIRIZINE [Concomitant]
     Active Substance: CETIRIZINE HYDROCHLORIDE
     Dates: start: 20230310
  16. ATENOLOL [Concomitant]
     Active Substance: ATENOLOL
  17. TAMSULOSIN [Concomitant]
     Active Substance: TAMSULOSIN

REACTIONS (7)
  - Death [Fatal]
  - Erysipelas [Recovered/Resolved]
  - Hypokalaemia [Not Recovered/Not Resolved]
  - Cancer pain [Not Recovered/Not Resolved]
  - Asthenia [Unknown]
  - Dermatitis [Recovered/Resolved]
  - Intentional product use issue [Unknown]

NARRATIVE: CASE EVENT DATE: 20230412
